FAERS Safety Report 7897671-4 (Version None)
Quarter: 2011Q4

REPORT INFORMATION
  Report Type: 
  Country: None (occurrence: None)
  Receive Date: 20111107
  Receipt Date: 20101011
  Transmission Date: 20120403
  Serious: No
  Sender: FDA-Public Use
  Company Number: US-BAYER-201039164NA

PATIENT
  Sex: Female

DRUGS (2)
  1. CLIMARA [Suspect]
     Indication: HOT FLUSH
     Dosage: 0.06 MG, QD
     Route: 062
  2. CLIMARA [Suspect]
     Indication: OESTROGEN REPLACEMENT THERAPY

REACTIONS (4)
  - MUSCLE TIGHTNESS [None]
  - HEADACHE [None]
  - HOT FLUSH [None]
  - EMOTIONAL DISORDER [None]
